FAERS Safety Report 5488143-5 (Version None)
Quarter: 2007Q4

REPORT INFORMATION
  Report Type: 
  Country: None (occurrence: None)
  Receive Date: 20071017
  Receipt Date: 20071010
  Transmission Date: 20080405
  Serious: Yes (Hospitalization)
  Sender: FDA-Public Use
  Company Number: FR-AVENTIS-200713240FR

PATIENT
  Age: 87 Year
  Sex: Female

DRUGS (3)
  1. FLAGYL [Suspect]
     Indication: ECZEMA
     Route: 048
     Dates: start: 20070319, end: 20070328
  2. CIFLOX                             /00697201/ [Suspect]
     Indication: ECZEMA
     Route: 048
     Dates: start: 20070319, end: 20070406
  3. ZELITREX [Concomitant]
     Indication: HERPES ZOSTER
     Route: 048
     Dates: start: 20070112, end: 20070119

REACTIONS (1)
  - ACUTE GENERALISED EXANTHEMATOUS PUSTULOSIS [None]
